FAERS Safety Report 24629124 (Version 1)
Quarter: 2024Q4

REPORT INFORMATION
  Report Type: Spontaneous
  Country: US (occurrence: US)
  Receive Date: 20241118
  Receipt Date: 20241118
  Transmission Date: 20250114
  Serious: No
  Sender: ARCUTIS
  Company Number: US-ARCUTIS BIOTHERAPEUTICS INC-2024AER000267

PATIENT

DRUGS (1)
  1. ZORYVE [Suspect]
     Active Substance: ROFLUMILAST
     Indication: Product used for unknown indication
     Dosage: UNK
     Route: 061
     Dates: start: 20240308

REACTIONS (5)
  - Drug ineffective [Unknown]
  - Product physical issue [Unknown]
  - Product packaging quantity issue [Unknown]
  - Product quality issue [Unknown]
  - Inappropriate schedule of product administration [Unknown]

NARRATIVE: CASE EVENT DATE: 20240101
